FAERS Safety Report 9426518 (Version 1)
Quarter: 2013Q3

REPORT INFORMATION
  Report Type: Spontaneous
  Country: US (occurrence: US)
  Receive Date: 20130730
  Receipt Date: 20130730
  Transmission Date: 20140515
  Serious: No
  Sender: FDA-Public Use
  Company Number: US-B.I. PHARMACEUTICALS,INC./RIDGEFIELD-2013-BI-22072BP

PATIENT
  Age: 81 Year
  Sex: Female
  Weight: 80 kg

DRUGS (1)
  1. PRADAXA [Suspect]
     Indication: CARDIOVASCULAR EVENT PROPHYLAXIS
     Dosage: 300 MG
     Route: 048
     Dates: start: 2011

REACTIONS (3)
  - Constipation [Not Recovered/Not Resolved]
  - Tooth fracture [Not Recovered/Not Resolved]
  - Herpes zoster [Not Recovered/Not Resolved]
